FAERS Safety Report 5748687-5 (Version None)
Quarter: 2008Q2

REPORT INFORMATION
  Report Type: 
  Country: None (occurrence: None)
  Receive Date: 20080521
  Receipt Date: 20080509
  Transmission Date: 20081010
  Serious: Yes (Other)
  Sender: FDA-Public Use
  Company Number: 2008012365

PATIENT
  Age: 36 Year
  Sex: Female

DRUGS (3)
  1. NICORETTE [Suspect]
     Indication: SMOKING CESSATION THERAPY
     Dosage: TRANSDERMAL
     Route: 062
  2. NICORETTE [Suspect]
     Indication: SMOKING CESSATION THERAPY
     Dosage: 7 PIECES OF GUM A DAY, ORAL
     Route: 048
  3. CHAMPIX (VARENICLINE TARTRATE) [Concomitant]

REACTIONS (3)
  - DRUG DEPENDENCE [None]
  - INCORRECT DOSE ADMINISTERED [None]
  - MULTIPLE SCLEROSIS [None]
